FAERS Safety Report 4433460-0 (Version None)
Quarter: 2004Q3

REPORT INFORMATION
  Report Type: 
  Country: None (occurrence: None)
  Receive Date: 20040824
  Receipt Date: 20040816
  Transmission Date: 20050211
  Serious: Yes (Death)
  Sender: FDA-Public Use
  Company Number: US-JNJFOC-20040805144

PATIENT
  Age: 15 Year
  Sex: Female

DRUGS (5)
  1. ACETAMINOPHEN [Suspect]
     Indication: SUICIDE ATTEMPT
  2. PHENYLPROPANOLAMINE (PHENYLPROPANOLMINE) [Suspect]
     Indication: SUICIDE ATTEMPT
  3. CHLOROPHENYLAMINE (ALL OTHER THERAPEUTIC PRODUCTS) [Suspect]
     Indication: SUICIDE ATTEMPT
  4. CODEINE (CODEINE) [Suspect]
     Indication: SUICIDE ATTEMPT
  5. SALICYLATE MEGLUMINE (ALL OTHER THERAPEUTIC PRODUCTS) [Suspect]
     Indication: SUICIDE ATTEMPT

REACTIONS (2)
  - COMPLETED SUICIDE [None]
  - OVERDOSE [None]
